FAERS Safety Report 5941399-4 (Version None)
Quarter: 2008Q4

REPORT INFORMATION
  Report Type: 
  Country: None (occurrence: None)
  Receive Date: 20081103
  Receipt Date: 20081021
  Transmission Date: 20090506
  Serious: Yes (Death, Other)
  Sender: FDA-Public Use
  Company Number: 2008-03013

PATIENT
  Age: 47 Year
  Sex: Female

DRUGS (1)
  1. VELCADE [Suspect]
     Indication: MULTIPLE MYELOMA

REACTIONS (8)
  - ASTHMA [None]
  - COUGH [None]
  - HYALURONIC ACID ABNORMAL [None]
  - LUNG INFECTION [None]
  - OXYGEN SATURATION DECREASED [None]
  - PLEURAL EFFUSION [None]
  - PYREXIA [None]
  - RESPIRATORY FAILURE [None]
